FAERS Safety Report 19313602 (Version 1)
Quarter: 2021Q2

REPORT INFORMATION
  Report Type: Report from Study
  Country: GB (occurrence: GB)
  Receive Date: 20210527
  Receipt Date: 20210527
  Transmission Date: 20210717
  Serious: No
  Sender: FDA-Public Use
  Company Number: GB-KARYOPHARM-2021KPT000557

PATIENT
  Age: 63 Year
  Sex: Female

DRUGS (3)
  1. SELINEXOR [Suspect]
     Active Substance: SELINEXOR
     Indication: PLASMA CELL MYELOMA
     Dosage: UNK UNK, WEEKLY
     Route: 048
     Dates: start: 20210114
  2. DEXAMETHASONE. [Concomitant]
     Active Substance: DEXAMETHASONE
     Indication: PLASMA CELL MYELOMA
     Dosage: UNK, WEEKLY
     Route: 065
     Dates: start: 20210114
  3. VELCADE [Concomitant]
     Active Substance: BORTEZOMIB
     Indication: PLASMA CELL MYELOMA
     Dosage: UNK, WEEKLY
     Route: 065
     Dates: start: 202104

REACTIONS (1)
  - Drug intolerance [Unknown]
